FAERS Safety Report 15862069 (Version 1)
Quarter: 2018Q4

REPORT INFORMATION
  Report Type: Spontaneous
  Country: US (occurrence: US)
  Receive Date: 20181228
  Receipt Date: 20181228
  Transmission Date: 20190205
  Serious: No
  Sender: FDA-Public Use
  Company Number: None

PATIENT
  Age: 36 Year
  Sex: Female

DRUGS (1)
  1. TENOFOVIR TAB 300MG [Suspect]
     Active Substance: TENOFOVIR
     Indication: HEPATITIS B
     Route: 048
     Dates: start: 201610, end: 201812

REACTIONS (3)
  - Dyspnoea [None]
  - Dry mouth [None]
  - Myalgia [None]

NARRATIVE: CASE EVENT DATE: 20181207
